FAERS Safety Report 6702293-4 (Version None)
Quarter: 2010Q2

REPORT INFORMATION
  Report Type: 
  Country: None (occurrence: None)
  Receive Date: 20100429
  Receipt Date: 20100421
  Transmission Date: 20101027
  Serious: Yes (Hospitalization)
  Sender: FDA-Public Use
  Company Number: US-RB-004103-10

PATIENT
  Sex: Male
  Weight: 108.8 kg

DRUGS (2)
  1. MUCINEX [Suspect]
     Indication: UPPER RESPIRATORY TRACT INFECTION
     Route: 048
     Dates: start: 20100121
  2. PLACEBO [Suspect]
     Indication: UPPER RESPIRATORY TRACT INFECTION
     Route: 048
     Dates: start: 20100121

REACTIONS (4)
  - ARRHYTHMIA SUPRAVENTRICULAR [None]
  - ENDOCARDITIS [None]
  - LYMPHOEDEMA [None]
  - PLEURAL EFFUSION [None]
